FAERS Safety Report 24872755 (Version 2)
Quarter: 2025Q1

REPORT INFORMATION
  Report Type: Spontaneous
  Country: IN (occurrence: IN)
  Receive Date: 20250122
  Receipt Date: 20250129
  Transmission Date: 20250409
  Serious: Yes (Disabling, Other)
  Sender: SANOFI AVENTIS
  Company Number: IN-MLMSERVICE-20250114-PI348451-00123-1

PATIENT
  Age: 72 Year
  Sex: Female

DRUGS (4)
  1. DOCETAXEL [Suspect]
     Active Substance: DOCETAXEL
     Indication: Uterine cancer
     Dosage: 60 MG/M2, Q3W
     Route: 042
  2. DOCETAXEL [Suspect]
     Active Substance: DOCETAXEL
     Route: 042
  3. CARBOPLATIN [Suspect]
     Active Substance: CARBOPLATIN
     Indication: Uterine cancer
     Dosage: UNK UNK, Q3W,(6 MG/ML/MIN)
     Route: 042
  4. CARBOPLATIN [Suspect]
     Active Substance: CARBOPLATIN
     Route: 042

REACTIONS (4)
  - Retinitis pigmentosa [Not Recovered/Not Resolved]
  - Visual impairment [Not Recovered/Not Resolved]
  - Maculopathy [Not Recovered/Not Resolved]
  - Ocular toxicity [Not Recovered/Not Resolved]
